FAERS Safety Report 8017796-2 (Version None)
Quarter: 2012Q1

REPORT INFORMATION
  Report Type: 
  Country: None (occurrence: None)
  Receive Date: 20120103
  Receipt Date: 20111229
  Transmission Date: 20120608
  Serious: No
  Sender: FDA-Public Use
  Company Number: US-PFIZER INC-2011316220

PATIENT
  Sex: Female

DRUGS (3)
  1. ZOLOFT [Suspect]
     Dosage: UNK
  2. SEROQUEL [Suspect]
     Dosage: UNK
  3. NAMENDA [Suspect]
     Dosage: UNK

REACTIONS (4)
  - FATIGUE [None]
  - MOVEMENT DISORDER [None]
  - TREMOR [None]
  - MUSCULOSKELETAL STIFFNESS [None]
